FAERS Safety Report 4903009-4 (Version None)
Quarter: 2006Q1

REPORT INFORMATION
  Report Type: 
  Country: None (occurrence: None)
  Receive Date: 20060207
  Receipt Date: 20060123
  Transmission Date: 20060701
  Serious: Yes (Disabling)
  Sender: FDA-Public Use
  Company Number: HQWYE489224JAN06

PATIENT
  Sex: Female

DRUGS (4)
  1. ENBREL [Suspect]
     Indication: JUVENILE ARTHRITIS
     Route: 058
     Dates: start: 20030815
  2. CORTANCYL [Suspect]
     Indication: ILL-DEFINED DISORDER
     Route: 048
  3. APRANAX [Suspect]
     Indication: DRUG USE FOR UNKNOWN INDICATION
     Dates: start: 20010927
  4. SOMATROPIN [Concomitant]
     Indication: BODY HEIGHT BELOW NORMAL
     Dosage: UNKNOWN
     Dates: start: 20010927

REACTIONS (3)
  - DIFFICULTY IN WALKING [None]
  - MUSCULOSKELETAL DISCOMFORT [None]
  - OSTEONECROSIS [None]
